FAERS Safety Report 16733223 (Version 1)
Quarter: 2019Q3

REPORT INFORMATION
  Report Type: Spontaneous
  Country: GB (occurrence: GB)
  Receive Date: 20190823
  Receipt Date: 20190823
  Transmission Date: 20191005
  Serious: Yes (Hospitalization)
  Sender: FDA-Public Use
  Company Number: GB-ACCORD-152509

PATIENT
  Age: 74 Year
  Sex: Female

DRUGS (13)
  1. ENOXAPARIN [Concomitant]
     Active Substance: ENOXAPARIN
  2. AMOXICILLIN. [Concomitant]
     Active Substance: AMOXICILLIN
  3. ATORVASTATIN [Concomitant]
     Active Substance: ATORVASTATIN
  4. OMEPRAZOLE. [Concomitant]
     Active Substance: OMEPRAZOLE
  5. GABAPENTIN. [Concomitant]
     Active Substance: GABAPENTIN
  6. SALBUTAMOL [Concomitant]
     Active Substance: ALBUTEROL
  7. LEVOTHYROXINE. [Concomitant]
     Active Substance: LEVOTHYROXINE
  8. FUROSEMIDE. [Suspect]
     Active Substance: FUROSEMIDE
     Indication: CARDIAC FAILURE CONGESTIVE
     Dosage: IN THE MORNING
     Route: 048
     Dates: start: 20180401, end: 20190630
  9. URSODEOXYCHOLATE SODIUM/URSODEOXYCHOLIC ACID [Concomitant]
  10. MELATONIN [Concomitant]
     Active Substance: MELATONIN
  11. RISPERIDONE. [Concomitant]
     Active Substance: RISPERIDONE
  12. PARACETAMOL [Concomitant]
     Active Substance: ACETAMINOPHEN
  13. NICOTINE. [Concomitant]
     Active Substance: NICOTINE

REACTIONS (5)
  - Cough [Unknown]
  - Dizziness [Unknown]
  - Syncope [Unknown]
  - Rales [Unknown]
  - Orthostatic hypotension [Recovered/Resolved]

NARRATIVE: CASE EVENT DATE: 20190629
